FAERS Safety Report 17312671 (Version 1)
Quarter: 2020Q1

REPORT INFORMATION
  Report Type: Spontaneous
  Country: US (occurrence: US)
  Receive Date: 20200123
  Receipt Date: 20200123
  Transmission Date: 20200409
  Serious: No
  Sender: FDA-Public Use
  Company Number: US-ASTRAZENECA-2020SE01739

PATIENT
  Age: 23045 Day
  Sex: Male
  Weight: 77.1 kg

DRUGS (3)
  1. CALQUENCE [Suspect]
     Active Substance: ACALABRUTINIB
     Indication: MANTLE CELL LYMPHOMA
     Route: 048
  2. SUDAFED [Concomitant]
     Active Substance: PSEUDOEPHEDRINE HYDROCHLORIDE
     Route: 065
  3. PEPCID [Concomitant]
     Active Substance: FAMOTIDINE
     Route: 065

REACTIONS (4)
  - Dyspepsia [Unknown]
  - Sinus congestion [Unknown]
  - Headache [Unknown]
  - Nasopharyngitis [Unknown]

NARRATIVE: CASE EVENT DATE: 20191229
